FAERS Safety Report 25659279 (Version 1)
Quarter: 2025Q3

REPORT INFORMATION
  Report Type: Spontaneous
  Country: US (occurrence: US)
  Receive Date: 20250808
  Receipt Date: 20250808
  Transmission Date: 20251020
  Serious: Yes (Other)
  Sender: AUROBINDO
  Company Number: US-AUROBINDO-AUR-APL-2025-040266

PATIENT
  Age: 40 Year
  Sex: Male

DRUGS (2)
  1. NICARDIPINE [Suspect]
     Active Substance: NICARDIPINE
     Indication: Hypertension
     Route: 065
  2. CLEVIDIPINE [Suspect]
     Active Substance: CLEVIDIPINE
     Indication: Hypertension
     Route: 065

REACTIONS (3)
  - Angioedema [Unknown]
  - Swelling of eyelid [Unknown]
  - Swelling face [Unknown]
